FAERS Safety Report 10148167 (Version 2)
Quarter: 2014Q2

REPORT INFORMATION
  Report Type: Spontaneous
  Country: US (occurrence: US)
  Receive Date: 20140501
  Receipt Date: 20140602
  Transmission Date: 20141212
  Serious: No
  Sender: FDA-Public Use
  Company Number: US-AMGEN-USASP2014027076

PATIENT
  Age: 14 Year
  Sex: Female
  Weight: 54.42 kg

DRUGS (4)
  1. ENBREL [Suspect]
     Indication: JUVENILE IDIOPATHIC ARTHRITIS
     Dosage: 25 MG, QWK
     Route: 058
     Dates: start: 20111212
  2. PREDNISONE [Concomitant]
     Indication: JUVENILE IDIOPATHIC ARTHRITIS
     Dosage: 20 MG, AS NECESSARY
     Route: 048
     Dates: start: 20110327
  3. MULTIVITAMIN                       /07504101/ [Concomitant]
     Indication: JUVENILE IDIOPATHIC ARTHRITIS
     Dosage: UNK, QD
     Route: 048
     Dates: start: 201103
  4. VIT D [Concomitant]
     Indication: JUVENILE IDIOPATHIC ARTHRITIS
     Dosage: UNK, QD
     Route: 048
     Dates: start: 201103

REACTIONS (11)
  - Dizziness [Recovered/Resolved]
  - Feeling abnormal [Unknown]
  - Injection site reaction [Recovered/Resolved]
  - Injection site swelling [Recovered/Resolved]
  - Injection site discolouration [Unknown]
  - Injection site warmth [Recovered/Resolved]
  - Injection site erythema [Recovered/Resolved]
  - Injection site pruritus [Recovered/Resolved]
  - Injection site urticaria [Recovered/Resolved]
  - Injection site pain [Unknown]
  - Injection site rash [Recovered/Resolved]
